FAERS Safety Report 14662351 (Version 7)
Quarter: 2023Q4

REPORT INFORMATION
  Report Type: Report from Study
  Country: JP (occurrence: JP)
  Receive Date: 20180321
  Receipt Date: 20231013
  Transmission Date: 20240110
  Serious: Yes (Disabling, Other)
  Sender: FDA-Public Use
  Company Number: JP-CHUGAI-A2018010494ROCHE

PATIENT
  Age: 62 Year
  Sex: Female
  Weight: 54 kg

DRUGS (14)
  1. TOCILIZUMAB [Suspect]
     Active Substance: TOCILIZUMAB
     Indication: Cytokine release syndrome
     Dosage: DOSAGE IS UNCERTAIN.
     Route: 065
     Dates: start: 20171211, end: 20171211
  2. TOCILIZUMAB [Suspect]
     Active Substance: TOCILIZUMAB
     Route: 065
  3. TISAGENLECLEUCEL [Suspect]
     Active Substance: TISAGENLECLEUCEL
     Indication: Cytokine release syndrome
     Dosage: 2.4415X10X3 BAGS TRANSDUCED CTL019 CELL COUNT
     Route: 065
     Dates: start: 20171207, end: 20171207
  4. RABEPRAZOLE SODIUM [Concomitant]
     Active Substance: RABEPRAZOLE SODIUM
     Indication: Prophylaxis against gastrointestinal ulcer
     Route: 048
     Dates: start: 20171010
  5. FLUCONAZOLE [Concomitant]
     Active Substance: FLUCONAZOLE
     Indication: Infection prophylaxis
     Route: 048
     Dates: start: 20171216
  6. MAGNESIUM OXIDE [Concomitant]
     Active Substance: MAGNESIUM OXIDE
     Indication: Constipation prophylaxis
     Dosage: PROPER PROPER QUANTITY
     Route: 048
  7. FEXOFENADINE HYDROCHLORIDE [Concomitant]
     Active Substance: FEXOFENADINE HYDROCHLORIDE
     Indication: Conjunctivitis allergic
     Route: 048
     Dates: start: 20180220
  8. LIVOSTIN [Concomitant]
     Active Substance: LEVOCABASTINE HYDROCHLORIDE
     Indication: Conjunctivitis allergic
     Dosage: 1 DROP AND DIVIDED INTO 4 DOSES
     Route: 047
     Dates: start: 20180220
  9. PENTAMIDINE [Concomitant]
     Active Substance: PENTAMIDINE
     Indication: Antifungal prophylaxis
     Dosage: DOSAGE IS UNCERTAIN.
     Route: 055
     Dates: start: 20171013
  10. SULTANOL [Concomitant]
     Active Substance: ALBUTEROL SULFATE
     Indication: Antifungal prophylaxis
     Dosage: DOSAGE IS UNCERTAIN.
     Route: 055
     Dates: start: 20171013
  11. CISPLATIN [Concomitant]
     Active Substance: CISPLATIN
  12. GEMCITABINE [Concomitant]
     Active Substance: GEMCITABINE
  13. DEXAMETHASONE [Concomitant]
     Active Substance: DEXAMETHASONE
  14. RITUXIMAB [Concomitant]
     Active Substance: RITUXIMAB
     Route: 065

REACTIONS (12)
  - Pancytopenia [Recovering/Resolving]
  - Anaemia [Recovered/Resolved]
  - Hypokalaemia [Recovered/Resolved]
  - Myelodysplastic syndrome [Not Recovered/Not Resolved]
  - Thrombocytopenia [Recovered/Resolved]
  - Neutropenia [Recovered/Resolved]
  - Neutrophil count decreased [Not Recovered/Not Resolved]
  - Leukopenia [Recovered/Resolved]
  - Respiratory tract infection [Recovered/Resolved]
  - Off label use [Unknown]
  - Leukopenia [Recovered/Resolved]
  - Conjunctivitis allergic [Recovered/Resolved]

NARRATIVE: CASE EVENT DATE: 20171213
